FAERS Safety Report 18493621 (Version 1)
Quarter: 2020Q4

REPORT INFORMATION
  Report Type: Spontaneous
  Country: US (occurrence: US)
  Receive Date: 20201111
  Receipt Date: 20201111
  Transmission Date: 20210114
  Serious: No
  Sender: FDA-Public Use
  Company Number: US-TAKEDA-2020TUS045639

PATIENT
  Sex: Female
  Weight: 94.33 kg

DRUGS (25)
  1. CETRIZINE [Concomitant]
     Active Substance: CETIRIZINE HYDROCHLORIDE
  2. DIPHENHYDRAMINE. [Concomitant]
     Active Substance: DIPHENHYDRAMINE
  3. VITAMIN D3 [Concomitant]
     Active Substance: CHOLECALCIFEROL
  4. BENLYSTA [Concomitant]
     Active Substance: BELIMUMAB
  5. MULTIVITAMIN (16) [Concomitant]
     Active Substance: VITAMINS
  6. GAMMAGARD LIQUID [Suspect]
     Active Substance: HUMAN IMMUNOGLOBULIN G
     Indication: IMMUNODEFICIENCY COMMON VARIABLE
     Dosage: 35 GRAM, Q4WEEKS
     Route: 042
     Dates: start: 20190811
  7. EPINEPHRINE. [Concomitant]
     Active Substance: EPINEPHRINE
  8. CARVEDILOL. [Concomitant]
     Active Substance: CARVEDILOL
  9. TRINTELLIX [Concomitant]
     Active Substance: VORTIOXETINE HYDROBROMIDE
  10. TIZANIDINE. [Concomitant]
     Active Substance: TIZANIDINE
  11. VICTOZA [Concomitant]
     Active Substance: LIRAGLUTIDE
  12. ELIQUIS [Concomitant]
     Active Substance: APIXABAN
  13. HYDROXYCHLOROQUINE [Concomitant]
     Active Substance: HYDROXYCHLOROQUINE
  14. OMEPRAZOLE. [Concomitant]
     Active Substance: OMEPRAZOLE
  15. HEPARIN [Concomitant]
     Active Substance: HEPARIN SODIUM
  16. ASPIRIN 81 [Concomitant]
     Active Substance: ASPIRIN
  17. BUTRANS [Concomitant]
     Active Substance: BUPRENORPHINE
  18. ACETAMINOPHEN. [Concomitant]
     Active Substance: ACETAMINOPHEN
  19. SODIUM CHLORIDE. [Concomitant]
     Active Substance: SODIUM CHLORIDE
  20. ISOSORBIDE. [Concomitant]
     Active Substance: ISOSORBIDE
  21. NUCYNTA [Concomitant]
     Active Substance: TAPENTADOL HYDROCHLORIDE
  22. GABAPENTIN. [Concomitant]
     Active Substance: GABAPENTIN
  23. MOTEGRITY [Concomitant]
     Active Substance: PRUCALOPRIDE SUCCINATE
  24. URSODIOL. [Concomitant]
     Active Substance: URSODIOL
  25. LIDOCAINE. [Concomitant]
     Active Substance: LIDOCAINE

REACTIONS (1)
  - Oxygen consumption increased [Unknown]
